FAERS Safety Report 10065918 (Version 1)
Quarter: 2014Q1

REPORT INFORMATION
  Report Type: Spontaneous
  Country: US (occurrence: None)
  Receive Date: 20140328
  Receipt Date: 20140328
  Transmission Date: 20141002
  Serious: No
  Sender: FDA-Public Use
  Company Number: 1000052240

PATIENT
  Age: 54 Year
  Sex: Male

DRUGS (5)
  1. LINZESS (LINACLOTIDE) (CAPSULES) [Suspect]
     Indication: CONSTIPATION
     Dosage: 290 MCG (290 MCG, 1 IN 1 D), ORAL
     Route: 048
     Dates: start: 20131204, end: 20131208
  2. LASIX (FUROSEMIDE) (FUROSEMIDE) [Concomitant]
  3. RANITIDINE (RANITIDINE) (RANTIDINE) [Concomitant]
  4. MICARDIS (TELMISARTAN) (TELMISARTAN) [Concomitant]
  5. PROCARDIA (NIFEDIPINE) (NIFEDIPINE) [Concomitant]

REACTIONS (1)
  - Diarrhoea [None]
